FAERS Safety Report 7982471-7 (Version None)
Quarter: 2011Q4

REPORT INFORMATION
  Report Type: 
  Country: None (occurrence: None)
  Receive Date: 20111215
  Receipt Date: 20111212
  Transmission Date: 20120403
  Serious: Yes (Death, Life-Threatening, Hospitalization)
  Sender: FDA-Public Use
  Company Number: PHHY2011NL48941

PATIENT
  Sex: Male

DRUGS (1)
  1. ALISKIREN [Suspect]
     Indication: HYPERTENSION
     Dosage: 300 MG, UNK
     Route: 048
     Dates: start: 20091102

REACTIONS (3)
  - NEOPLASM MALIGNANT [None]
  - INFECTIOUS PERITONITIS [None]
  - LUNG NEOPLASM MALIGNANT [None]
